FAERS Safety Report 5352848-7 (Version None)
Quarter: 2007Q2

REPORT INFORMATION
  Report Type: 
  Country: None (occurrence: None)
  Receive Date: 20070611
  Receipt Date: 20070529
  Transmission Date: 20071010
  Serious: No
  Sender: FDA-Public Use
  Company Number: JP-ELI_LILLY_AND_COMPANY-JP200706000649

PATIENT
  Age: 29 Year
  Sex: Female
  Weight: 54 kg

DRUGS (5)
  1. ZYPREXA [Suspect]
     Indication: SCHIZOPHRENIA
     Dosage: 10 MG, DAILY (1/D)
     Route: 048
     Dates: start: 20061212, end: 20061225
  2. ZYPREXA [Suspect]
     Dosage: 15 MG, DAILY (1/D)
     Route: 048
     Dates: start: 20061226, end: 20070528
  3. ZYPREXA [Suspect]
     Dosage: 10 MG, DAILY (1/D)
     Route: 048
     Dates: start: 20070529
  4. TALION [Concomitant]
     Indication: RHINITIS ALLERGIC
     Dosage: UNK, 2/D
     Route: 048
     Dates: end: 20070506
  5. BRUFEN [Concomitant]
     Indication: RHINITIS ALLERGIC
     Dosage: UNK, 3/D
     Route: 048
     Dates: end: 20070506

REACTIONS (3)
  - ALANINE AMINOTRANSFERASE INCREASED [None]
  - ASPARTATE AMINOTRANSFERASE INCREASED [None]
  - LEUKOPENIA [None]
